FAERS Safety Report 15616742 (Version 1)
Quarter: 2018Q4

REPORT INFORMATION
  Report Type: Spontaneous
  Country: US (occurrence: US)
  Receive Date: 20181109
  Receipt Date: 20181109
  Transmission Date: 20190205
  Serious: No
  Sender: FDA-Public Use
  Company Number: None

PATIENT
  Age: 45 Year
  Sex: Female
  Weight: 52.16 kg

DRUGS (4)
  1. SUBOXONE [Suspect]
     Active Substance: BUPRENORPHINE HYDROCHLORIDE\NALOXONE HYDROCHLORIDE
     Indication: DRUG DEPENDENCE
     Dosage: QUANTITY:8MG-2MG 1;OTHER ROUTE:UNDER THE TONGUE?
     Dates: start: 20181022, end: 20181107
  2. BUSPIRONE [Concomitant]
     Active Substance: BUSPIRONE HYDROCHLORIDE
  3. PRAZOSIN. [Concomitant]
     Active Substance: PRAZOSIN
  4. FLUOXETINE [Concomitant]
     Active Substance: FLUOXETINE HYDROCHLORIDE

REACTIONS (7)
  - Mass [None]
  - Swollen tongue [None]
  - Skin discolouration [None]
  - Tongue discomfort [None]
  - Tongue disorder [None]
  - Ear pain [None]
  - Tongue blistering [None]

NARRATIVE: CASE EVENT DATE: 20181107
